FAERS Safety Report 4864124-7 (Version None)
Quarter: 2005Q4

REPORT INFORMATION
  Report Type: 
  Country: None (occurrence: None)
  Receive Date: 20051222
  Receipt Date: 20051116
  Transmission Date: 20060501
  Serious: Yes (Life-Threatening, Hospitalization)
  Sender: FDA-Public Use
  Company Number: JP-JPN-A20052766

PATIENT
  Age: 83 Year
  Sex: Female

DRUGS (10)
  1. PAXIL [Suspect]
     Indication: DEPRESSION
     Dosage: 10MG PER DAY
     Route: 048
     Dates: start: 20011225, end: 20050424
  2. VALPROATE SODIUM [Suspect]
     Indication: BIPOLAR I DISORDER
     Dosage: 100MG TWICE PER DAY
     Route: 048
     Dates: start: 20020104, end: 20050424
  3. AMLODIPINE [Concomitant]
     Indication: HYPERTENSION
     Dosage: 5MG PER DAY
     Route: 048
     Dates: start: 20010101
  4. CANDESARTAN CILEXETIL [Concomitant]
     Indication: HYPERTENSION
     Dosage: 8MG PER DAY
     Route: 048
     Dates: start: 20010701
  5. ALPHA-1 PROTEINASE INHIBITOR [Concomitant]
     Indication: ARTERIOSCLEROSIS OBLITERANS
     Dosage: 200MG PER DAY
     Route: 048
     Dates: start: 20010801
  6. THEOPHYLLINE [Concomitant]
     Indication: WHEEZING
     Dosage: 200MG PER DAY
     Route: 048
     Dates: start: 20010801
  7. ATORVASTATIN CALCIUM [Concomitant]
     Dosage: 5MG PER DAY
     Route: 048
     Dates: start: 20010801
  8. REBAMIPIDE [Concomitant]
     Indication: GASTRITIS
     Dosage: 200MG PER DAY
     Route: 048
     Dates: start: 20011225
  9. MILRINONE [Concomitant]
     Indication: CARDIAC FAILURE
     Route: 042
     Dates: start: 20050422
  10. FUROSEMIDE [Concomitant]
     Indication: CARDIAC FAILURE
     Route: 042

REACTIONS (8)
  - ATRIOVENTRICULAR BLOCK COMPLETE [None]
  - BRADYCARDIA [None]
  - CARDIAC FAILURE [None]
  - CARDIAC FAILURE CONGESTIVE [None]
  - ELECTROCARDIOGRAM QT PROLONGED [None]
  - HYPERTENSION [None]
  - HYPOKALAEMIA [None]
  - VENTRICULAR TACHYCARDIA [None]
